FAERS Safety Report 4816258-0 (Version None)
Quarter: 2005Q4

REPORT INFORMATION
  Report Type: 
  Country: None (occurrence: None)
  Receive Date: 20051028
  Receipt Date: 20051025
  Transmission Date: 20060501
  Serious: Yes (Other)
  Sender: FDA-Public Use
  Company Number: 2005RR-00984

PATIENT
  Age: 56 Year
  Sex: Male

DRUGS (8)
  1. SIMVASTATIN [Suspect]
     Dosage: 40 MG, QD
  2. AMIODARONE HCL [Suspect]
     Indication: SUPRAVENTRICULAR TACHYCARDIA
     Dosage: SEE IMAGE
     Route: 042
  3. AMIODARONE HCL [Suspect]
     Indication: SUPRAVENTRICULAR TACHYCARDIA
     Dosage: SEE IMAGE
     Route: 042
  4. CLARITHROMYCIN [Suspect]
     Indication: LOWER RESPIRATORY TRACT INFECTION
     Dosage: 1 G, QD, ORAL
     Route: 048
  5. ASPIRIN [Concomitant]
  6. AMLODIPINE [Concomitant]
  7. FERROUS SULFATE TAB [Concomitant]
  8. LANSOPRAZOLE [Concomitant]

REACTIONS (16)
  - ALANINE AMINOTRANSFERASE INCREASED [None]
  - ASPARTATE AMINOTRANSFERASE INCREASED [None]
  - ASTHENIA [None]
  - BLOOD CREATINE PHOSPHOKINASE INCREASED [None]
  - DRUG INTERACTION [None]
  - IMPAIRED HEALING [None]
  - INFECTION [None]
  - LIVER FUNCTION TEST ABNORMAL [None]
  - MYALGIA [None]
  - MYOPATHY [None]
  - MYOSITIS [None]
  - PERICARDIAL EFFUSION [None]
  - PLEURAL EFFUSION [None]
  - PNEUMONIA [None]
  - PULMONARY EMBOLISM [None]
  - SUPRAVENTRICULAR TACHYCARDIA [None]
